FAERS Safety Report 23170092 (Version 2)
Quarter: 2023Q4

REPORT INFORMATION
  Report Type: Other
  Country: US (occurrence: US)
  Receive Date: 20231110
  Receipt Date: 20231122
  Transmission Date: 20240110
  Serious: Yes (Hospitalization)
  Sender: FDA-Public Use
  Company Number: US-ALVOGEN-2023092529

PATIENT
  Age: 58 Year
  Sex: Male

DRUGS (2)
  1. MELPHALAN [Suspect]
     Active Substance: MELPHALAN
     Indication: Plasma cell myeloma refractory
     Dosage: HIGH-DOSE CHEMOTHERAPY
  2. MELPHALAN [Suspect]
     Active Substance: MELPHALAN
     Indication: Plasma cell myeloma refractory
     Dosage: HIGH-DOSE CHEMOTHERAPY?200?MG/M2 (350?MG) INFUSION OVER ONE HOUR

REACTIONS (12)
  - Toxicity to various agents [Unknown]
  - Oesophageal stenosis [Recovering/Resolving]
  - Pancytopenia [Unknown]
  - Hyponatraemia [Unknown]
  - Osteolysis [Unknown]
  - Lung opacity [Unknown]
  - Hypotension [Recovering/Resolving]
  - Mucosal inflammation [Unknown]
  - Febrile neutropenia [Unknown]
  - Cough [Unknown]
  - Anaemia [Unknown]
  - Diarrhoea [Recovered/Resolved]
